FAERS Safety Report 6727237-0 (Version None)
Quarter: 2010Q2

REPORT INFORMATION
  Report Type: 
  Country: None (occurrence: None)
  Receive Date: 20100517
  Receipt Date: 20100401
  Transmission Date: 20101027
  Serious: Yes (Other)
  Sender: FDA-Public Use
  Company Number: US-BAYER-201015564NA

PATIENT
  Age: 22 Year
  Sex: Female

DRUGS (2)
  1. YASMIN [Suspect]
     Indication: CONTRACEPTION
     Dosage: DISCREPANT DATES
     Route: 048
     Dates: start: 20030118, end: 20060101
  2. YAZ [Suspect]
     Indication: CONTRACEPTION
     Dosage: DISCREPANT DATES
     Route: 048

REACTIONS (4)
  - CHOLECYSTITIS [None]
  - MALAISE [None]
  - PYREXIA [None]
  - RASH [None]
